FAERS Safety Report 9977668 (Version 1)
Quarter: 2014Q1

REPORT INFORMATION
  Report Type: Report from Study
  Country: US (occurrence: US)
  Receive Date: 20140306
  Receipt Date: 20140306
  Transmission Date: 20141002
  Serious: No
  Sender: FDA-Public Use
  Company Number: US-ABBVIE-13P-163-1161334-00

PATIENT
  Age: 55 Year
  Sex: Male
  Weight: 89.89 kg

DRUGS (7)
  1. HUMIRA [Suspect]
     Indication: RHEUMATOID ARTHRITIS
     Dates: start: 201307, end: 201309
  2. PREDNISONE [Concomitant]
     Indication: RHEUMATOID ARTHRITIS
  3. METFORMIN [Concomitant]
     Indication: DIABETES MELLITUS
  4. LIPITOR [Concomitant]
     Indication: BLOOD CHOLESTEROL INCREASED
  5. CELEBREX [Concomitant]
     Indication: RHEUMATOID ARTHRITIS
  6. IMURAN [Concomitant]
     Indication: RHEUMATOID ARTHRITIS
  7. LISINOPRIL [Concomitant]
     Indication: HYPERTENSION

REACTIONS (2)
  - Pain [Recovered/Resolved]
  - Joint swelling [Recovered/Resolved]
